FAERS Safety Report 6278554-2 (Version None)
Quarter: 2009Q3

REPORT INFORMATION
  Report Type: 
  Country: None (occurrence: None)
  Receive Date: 20090722
  Receipt Date: 20080902
  Transmission Date: 20100115
  Serious: No
  Sender: FDA-Public Use
  Company Number: US-BAUSCH-2008BL003799

PATIENT
  Age: 56 Year
  Sex: Female
  Weight: 56 kg

DRUGS (5)
  1. OPCON-A [Suspect]
     Indication: SEASONAL ALLERGY
     Route: 047
     Dates: start: 20080830, end: 20080831
  2. ZOLOFT [Concomitant]
     Indication: DEPRESSION
  3. CLONAZEPAM [Concomitant]
     Indication: DEPRESSION
  4. LEVOXILE [Concomitant]
     Indication: THYROID DISORDER
  5. ADVAIR HFA [Concomitant]
     Indication: ASTHMA

REACTIONS (1)
  - INSTILLATION SITE IRRITATION [None]
